FAERS Safety Report 16853284 (Version 1)
Quarter: 2019Q3

REPORT INFORMATION
  Report Type: Spontaneous
  Country: US (occurrence: US)
  Receive Date: 20190925
  Receipt Date: 20190925
  Transmission Date: 20191005
  Serious: No
  Sender: FDA-Public Use
  Company Number: US-VIFOR (INTERNATIONAL) INC.-VIT-2019-08830

PATIENT
  Sex: Female

DRUGS (12)
  1. LEVETIRACETAM. [Concomitant]
     Active Substance: LEVETIRACETAM
  2. GENTAMICIN. [Concomitant]
     Active Substance: GENTAMICIN
  3. AMLODIPINE [Concomitant]
     Active Substance: AMLODIPINE BESYLATE
  4. VIMPAT [Concomitant]
     Active Substance: LACOSAMIDE
  5. TRADJENTA [Concomitant]
     Active Substance: LINAGLIPTIN
  6. CARVEDILOL. [Concomitant]
     Active Substance: CARVEDILOL
  7. MUPIROCIN. [Concomitant]
     Active Substance: MUPIROCIN
  8. VELTASSA [Suspect]
     Active Substance: PATIROMER
     Indication: HYPERKALAEMIA
     Route: 048
     Dates: start: 20161129
  9. PROPRANOLOL [Concomitant]
     Active Substance: PROPRANOLOL HYDROCHLORIDE
  10. HYDRALAZINE [Concomitant]
     Active Substance: HYDRALAZINE HYDROCHLORIDE
  11. TRAVATAN [Concomitant]
     Active Substance: TRAVOPROST
  12. PANTOPRAZOLE [Concomitant]
     Active Substance: PANTOPRAZOLE

REACTIONS (1)
  - Constipation [Unknown]
